FAERS Safety Report 7983576-7 (Version None)
Quarter: 2011Q4

REPORT INFORMATION
  Report Type: 
  Country: None (occurrence: None)
  Receive Date: 20111215
  Receipt Date: 20111207
  Transmission Date: 20120403
  Serious: Yes (Hospitalization, Other)
  Sender: FDA-Public Use
  Company Number: PHHY2010TW50803

PATIENT
  Sex: Male

DRUGS (2)
  1. SUTENT [Suspect]
     Dosage: 3 CAPSULES
     Route: 048
     Dates: start: 20100729, end: 20101101
  2. GLEEVEC [Suspect]
     Indication: GASTROINTESTINAL STROMAL TUMOUR
     Dosage: 300 MG, UNK
     Route: 048
     Dates: start: 20080619, end: 20100701

REACTIONS (10)
  - DIZZINESS POSTURAL [None]
  - OEDEMA PERIPHERAL [None]
  - COUGH [None]
  - DRUG INEFFECTIVE [None]
  - DECREASED APPETITE [None]
  - AGEUSIA [None]
  - WEIGHT DECREASED [None]
  - MASS [None]
  - INFLAMMATION [None]
  - PYREXIA [None]
